FAERS Safety Report 12283605 (Version 1)
Quarter: 2016Q2

REPORT INFORMATION
  Report Type: Spontaneous
  Country: GB (occurrence: GB)
  Receive Date: 20160419
  Receipt Date: 20160419
  Transmission Date: 20160815
  Serious: Yes (Other)
  Sender: FDA-Public Use
  Company Number: GB-TEVA-651687ACC

PATIENT
  Age: 67 Year
  Sex: Male
  Weight: 100 kg

DRUGS (24)
  1. ATORVASTATIN [Concomitant]
     Active Substance: ATORVASTATIN
     Dosage: 1 DOSAGE FORMS DAILY; IN THE AFTERNOON.
     Dates: start: 20160220, end: 20160331
  2. ALGINATES [Concomitant]
     Dosage: AFTER FOOD IF NEEDED.
     Dates: start: 20160316, end: 20160326
  3. AMLODIPINE [Concomitant]
     Active Substance: AMLODIPINE BESYLATE
     Dosage: 1 DOSAGE FORMS DAILY; EVERY DAY
     Dates: start: 20160314, end: 20160329
  4. HYPROMELLOSE [Concomitant]
     Active Substance: HYPROMELLOSES
     Dosage: INSTIL ONE DROP IN TO BOTH EYES AS NEEDED.
     Dates: start: 20160223, end: 20160322
  5. NICORANDIL [Concomitant]
     Active Substance: NICORANDIL
     Dosage: 2 DOSAGE FORMS DAILY;
     Dates: start: 20160224
  6. VITAMINS NOS [Concomitant]
     Active Substance: VITAMINS
     Dosage: 1 DOSAGE FORMS DAILY;
     Dates: start: 20160220, end: 20160331
  7. DOXAZOSIN [Concomitant]
     Active Substance: DOXAZOSIN\DOXAZOSIN MESYLATE
     Dosage: 1 DOSAGE FORMS DAILY;
     Dates: start: 20160220, end: 20160331
  8. METFORMIN [Concomitant]
     Active Substance: METFORMIN HYDROCHLORIDE
     Dosage: 2 DOSAGE FORMS DAILY;
     Dates: start: 20160329, end: 20160329
  9. PREDNISOLONE. [Concomitant]
     Active Substance: PREDNISOLONE
     Dosage: 1 DOSAGE FORMS DAILY;
     Dates: start: 20160220, end: 20160331
  10. AMOXICILLIN. [Concomitant]
     Active Substance: AMOXICILLIN
     Dosage: 3 DOSAGE FORMS DAILY;
     Dates: start: 20160220, end: 20160227
  11. ASPIRIN. [Concomitant]
     Active Substance: ASPIRIN
     Dosage: 1 DOSAGE FORMS DAILY; IN THE MORNING.
     Dates: start: 20160220, end: 20160331
  12. LANSOPRAZOLE. [Concomitant]
     Active Substance: LANSOPRAZOLE
     Dosage: 1 DOSAGE FORMS DAILY;
     Dates: start: 20160329, end: 20160329
  13. ATENOLOL. [Concomitant]
     Active Substance: ATENOLOL
     Dosage: 1 DOSAGE FORMS DAILY; IN THE MORNING.
     Dates: start: 20160220, end: 20160331
  14. AZATHIOPRINE. [Concomitant]
     Active Substance: AZATHIOPRINE
     Dosage: 1 DOSAGE FORMS DAILY; IN THE MORNING.
     Dates: start: 20160329, end: 20160329
  15. HUMALOG [Concomitant]
     Active Substance: INSULIN LISPRO
     Dosage: 2 DOSAGE FORMS DAILY; AS DIRECTED DEPENDING ON BLOOD SUGARS.
     Dates: start: 20160329
  16. LISINOPRIL. [Suspect]
     Active Substance: LISINOPRIL
     Dates: start: 20160331
  17. CARMELLOSE SODIUM [Concomitant]
     Active Substance: CARBOXYMETHYLCELLULOSE SODIUM
     Indication: DRY EYE
     Dosage: ONE DROP IN EACH EYE AS NEEDED.
     Route: 050
     Dates: start: 20160223, end: 20160308
  18. FLUCLOXACILLIN [Concomitant]
     Active Substance: FLUCLOXACILLIN
     Dosage: 4 DOSAGE FORMS DAILY;
     Dates: start: 20160220, end: 20160225
  19. PROGRAF [Concomitant]
     Active Substance: TACROLIMUS\TACROLIMUS ANHYDROUS
     Dosage: 2 DOSAGE FORMS DAILY;
     Dates: start: 20160220
  20. VITAMIN B SUBSTANCES [Concomitant]
     Dosage: 2 DOSAGE FORMS DAILY;
     Dates: start: 20160220, end: 20160331
  21. LACTULOSE. [Concomitant]
     Active Substance: LACTULOSE
     Dates: start: 20160324, end: 20160326
  22. LEVOTHYROXINE. [Concomitant]
     Active Substance: LEVOTHYROXINE
     Dosage: 1 DOSAGE FORMS DAILY;
     Dates: start: 20160220, end: 20160331
  23. PARACETAMOL [Concomitant]
     Active Substance: ACETAMINOPHEN
     Dosage: 8 DOSAGE FORMS DAILY; 2 TABLET, 4 TIMES PER 24 HOURS
     Dates: start: 20160330
  24. TAMSULOSIN HYDROCHLORIDE. [Concomitant]
     Active Substance: TAMSULOSIN HYDROCHLORIDE
     Dosage: 1 DOSAGE FORMS DAILY;
     Dates: start: 20160220, end: 20160331

REACTIONS (1)
  - Palpitations [Not Recovered/Not Resolved]

NARRATIVE: CASE EVENT DATE: 20160331
